FAERS Safety Report 5291743-9 (Version None)
Quarter: 2007Q2

REPORT INFORMATION
  Report Type: 
  Country: None (occurrence: None)
  Receive Date: 20070410
  Receipt Date: 20070326
  Transmission Date: 20071010
  Serious: Yes (Other)
  Sender: FDA-Public Use
  Company Number: FR-JNJFOC-20070203369

PATIENT
  Age: 56 Year
  Sex: Female
  Weight: 68 kg

DRUGS (9)
  1. REMICADE [Suspect]
     Dosage: NINTH DOSE
     Route: 042
  2. REMICADE [Suspect]
     Indication: ANKYLOSING SPONDYLITIS
     Route: 042
  3. REMICADE [Suspect]
     Indication: CROHN'S DISEASE
     Dosage: FIRST INFUSION
     Route: 042
  4. SALAZOPYRINE [Concomitant]
     Indication: ANKYLOSING SPONDYLITIS
     Route: 048
  5. KARDEGIC [Concomitant]
     Indication: MYOCARDIAL INFARCTION
     Route: 048
  6. SECTRAL [Concomitant]
     Indication: MYOCARDIAL INFARCTION
     Route: 048
  7. CORVASAL [Concomitant]
     Indication: MYOCARDIAL INFARCTION
     Route: 048
  8. LEVOTHYROXINE SODIUM [Concomitant]
     Indication: GOITRE
     Route: 048
  9. OMEPRAZOLE [Concomitant]
     Indication: ABDOMINAL PAIN UPPER
     Route: 048

REACTIONS (7)
  - BLOOD 1,25-DIHYDROXYCHOLECALCIFEROL INCREASED [None]
  - BLOOD 25-HYDROXYCHOLECALCIFEROL DECREASED [None]
  - BLOOD ALKALINE PHOSPHATASE INCREASED [None]
  - DRUG INEFFECTIVE [None]
  - OSTEOMALACIA [None]
  - RED BLOOD CELL SEDIMENTATION RATE INCREASED [None]
  - RENAL TUBULAR DISORDER [None]
